FAERS Safety Report 19117090 (Version 3)
Quarter: 2021Q2

REPORT INFORMATION
  Report Type: Report from Study
  Country: US (occurrence: US)
  Receive Date: 20210410
  Receipt Date: 20210607
  Transmission Date: 20210717
  Serious: Yes (Hospitalization, Other)
  Sender: FDA-Public Use
  Company Number: US-BRISTOL-MYERS SQUIBB COMPANY-BMS-2021-035014

PATIENT
  Age: 82 Year
  Sex: Female

DRUGS (1)
  1. NIVOLUMAB [Suspect]
     Active Substance: NIVOLUMAB
     Indication: MALIGNANT MELANOMA
     Dosage: 240 MILLIGRAM
     Route: 042

REACTIONS (4)
  - Hyponatraemia [Recovered/Resolved]
  - Hypertension [Recovered/Resolved]
  - Acute kidney injury [Recovered/Resolved]
  - Troponin I increased [Recovered/Resolved]

NARRATIVE: CASE EVENT DATE: 20201023
